FAERS Safety Report 7081707-7 (Version None)
Quarter: 2010Q4

REPORT INFORMATION
  Report Type: 
  Country: None (occurrence: None)
  Receive Date: 20101025
  Receipt Date: 20101009
  Transmission Date: 20110411
  Serious: Yes (Hospitalization, Other)
  Sender: FDA-Public Use
  Company Number: 530#6#2008-00021

PATIENT
  Sex: Male
  Weight: 96 kg

DRUGS (9)
  1. ROTIGOTINE (NEUPRO) [Suspect]
     Indication: PARKINSON'S DISEASE
     Dosage: SEE IMAGE
     Route: 062
     Dates: start: 20080404, end: 20080411
  2. ROTIGOTINE (NEUPRO) [Suspect]
     Indication: PARKINSON'S DISEASE
     Dosage: SEE IMAGE
     Route: 062
     Dates: start: 20080412, end: 20080519
  3. ROTIGOTINE (NEUPRO) [Suspect]
     Indication: PARKINSON'S DISEASE
     Dosage: SEE IMAGE
     Route: 062
     Dates: start: 20080520, end: 20080701
  4. ACETYLSALICYLIC ACID (ACETYLSALICYLIC ACID) (NOT SPECIFIED) [Suspect]
     Indication: PROPHYLAXIS
     Dosage: (100 MG QD ORAL)
     Route: 048
     Dates: start: 20070101
  5. FLECAINIDE ACETATE [Suspect]
     Indication: VENTRICULAR TACHYCARDIA
     Dosage: (50 MG BID ORAL)
     Route: 048
     Dates: start: 20050801
  6. OMEPRAZOLE [Concomitant]
  7. PREDNISOLONE [Concomitant]
  8. DOXEPIN HCL [Concomitant]
  9. MOTILIUM /00498201/ [Concomitant]

REACTIONS (1)
  - PANCYTOPENIA [None]
